FAERS Safety Report 13889460 (Version 1)
Quarter: 2017Q3

REPORT INFORMATION
  Report Type: Spontaneous
  Country: US (occurrence: US)
  Receive Date: 20170816
  Receipt Date: 20170816
  Transmission Date: 20171127
  Serious: Yes (Hospitalization)
  Sender: FDA-Public Use
  Company Number: None

PATIENT
  Age: 79 Year
  Sex: Female

DRUGS (3)
  1. DEPO-MEDROL [Suspect]
     Active Substance: METHYLPREDNISOLONE ACETATE
     Indication: ARTHRALGIA
     Route: 014
     Dates: start: 20170810, end: 20170810
  2. BUPIVACAINE. [Suspect]
     Active Substance: BUPIVACAINE
     Indication: ARTHRALGIA
     Route: 014
     Dates: start: 20170810, end: 20170810
  3. LIDOCAINE HCL [Concomitant]
     Active Substance: LIDOCAINE HYDROCHLORIDE

REACTIONS (2)
  - Post procedural complication [None]
  - Septic arthritis staphylococcal [None]

NARRATIVE: CASE EVENT DATE: 20170810
